FAERS Safety Report 16548771 (Version 4)
Quarter: 2019Q3

REPORT INFORMATION
  Report Type: Spontaneous
  Country: US (occurrence: US)
  Receive Date: 20190709
  Receipt Date: 20190925
  Transmission Date: 20191004
  Serious: Yes (Other)
  Sender: FDA-Public Use
  Company Number: US-BRISTOL-MYERS SQUIBB COMPANY-BMS-2019-063748

PATIENT
  Sex: Female
  Weight: 54.4 kg

DRUGS (5)
  1. ALEVE [Suspect]
     Active Substance: NAPROXEN SODIUM
     Indication: ANTIINFLAMMATORY THERAPY
     Dosage: UNK, BID
     Route: 048
  2. FISH OIL [Concomitant]
     Active Substance: FISH OIL
     Indication: ADVERSE EVENT
     Dosage: 1200 MILLIGRAM
     Route: 048
  3. MULTIVITAMINS [VITAMINS NOS] [Concomitant]
     Active Substance: VITAMINS
     Indication: ADVERSE EVENT
     Dosage: 1 DOSAGE FORM
     Route: 048
  4. ORENCIA [Suspect]
     Active Substance: ABATACEPT
     Indication: RHEUMATOID ARTHRITIS
     Dosage: 750 MILLIGRAM
     Route: 042
     Dates: start: 20180412, end: 20190513
  5. VITAMIN D [VITAMIN D NOS] [Concomitant]
     Active Substance: VITAMIN D NOS
     Indication: ADVERSE EVENT
     Dosage: 1 DOSAGE FORM
     Route: 048

REACTIONS (10)
  - Weight decreased [Unknown]
  - Arthralgia [Unknown]
  - Pain [Unknown]
  - Stomatitis [Unknown]
  - Abdominal discomfort [Not Recovered/Not Resolved]
  - Gastritis erosive [Unknown]
  - Aphthous ulcer [Recovered/Resolved]
  - Gastritis [Unknown]
  - Swelling [Unknown]
  - Abdominal pain upper [Unknown]
